FAERS Safety Report 16317975 (Version 3)
Quarter: 2021Q2

REPORT INFORMATION
  Report Type: Spontaneous
  Country: US (occurrence: US)
  Receive Date: 20190516
  Receipt Date: 20210416
  Transmission Date: 20210716
  Serious: Yes (Hospitalization, Other)
  Sender: FDA-Public Use
  Company Number: US-CELLTRION INC.-2019US018877

PATIENT

DRUGS (1)
  1. INFLECTRA [Suspect]
     Active Substance: INFLIXIMAB-DYYB
     Indication: ANKYLOSING SPONDYLITIS
     Dosage: 700 MG, EVERY 8 WEEKS

REACTIONS (6)
  - Accident [Unknown]
  - Condition aggravated [Unknown]
  - Intentional dose omission [Unknown]
  - Spinal operation [Unknown]
  - Therapy change [Unknown]
  - Product prescribing issue [Unknown]
